FAERS Safety Report 18607108 (Version 1)
Quarter: 2020Q4

REPORT INFORMATION
  Report Type: Spontaneous
  Country: US (occurrence: US)
  Receive Date: 20201211
  Receipt Date: 20201211
  Transmission Date: 20210114
  Serious: No
  Sender: FDA-Public Use
  Company Number: US-PFIZER INC-2020486813

PATIENT
  Age: 71 Year
  Sex: Female
  Weight: 53.07 kg

DRUGS (2)
  1. IBRANCE [Suspect]
     Active Substance: PALBOCICLIB
     Indication: BREAST CANCER STAGE IV
     Dosage: 125 MG, CYCLIC (125MG; TAKE ONE DAILY BY MOUTH FOR 21 AND OFF FOR 7 DAYS)
     Route: 048
  2. LETROZOLE. [Concomitant]
     Active Substance: LETROZOLE
     Indication: BREAST CANCER STAGE IV
     Dosage: 2.5 MG, DAILY (2.5MG DAILY BY MOUTH)
     Route: 048

REACTIONS (3)
  - Nasopharyngitis [Recovered/Resolved]
  - White blood cell count decreased [Unknown]
  - Blood count abnormal [Unknown]
